FAERS Safety Report 9690251 (Version 1)
Quarter: 2013Q4

REPORT INFORMATION
  Report Type: Spontaneous
  Country: US (occurrence: US)
  Receive Date: 20131115
  Receipt Date: 20131115
  Transmission Date: 20140711
  Serious: Yes (Hospitalization, Other)
  Sender: FDA-Public Use
  Company Number: US-ELI_LILLY_AND_COMPANY-US201311002857

PATIENT
  Age: 58 Year
  Sex: Female

DRUGS (4)
  1. CYMBALTA [Suspect]
     Indication: BACK PAIN
     Dosage: 30 MG, QD
     Route: 065
     Dates: start: 201303
  2. CYMBALTA [Suspect]
     Indication: PAIN IN EXTREMITY
  3. CYMBALTA [Suspect]
     Indication: NECK PAIN
  4. VICODIN [Concomitant]
     Indication: PRODUCT USED FOR UNKNOWN INDICATION
     Dosage: UNK, UNKNOWN
     Route: 065

REACTIONS (3)
  - Lung neoplasm malignant [Unknown]
  - Neuropathy peripheral [Unknown]
  - Anxiety [Unknown]
